FAERS Safety Report 20070553 (Version 1)
Quarter: 2021Q4

REPORT INFORMATION
  Report Type: Spontaneous
  Country: US (occurrence: US)
  Receive Date: 20211115
  Receipt Date: 20211115
  Transmission Date: 20220303
  Serious: No
  Sender: FDA-Public Use
  Company Number: US-OptiNose US, Inc-2021OPT000238

PATIENT
  Sex: Male

DRUGS (1)
  1. XHANCE [Suspect]
     Active Substance: FLUTICASONE PROPIONATE
     Indication: Product used for unknown indication
     Route: 045

REACTIONS (5)
  - Pharyngitis streptococcal [Unknown]
  - Insomnia [Unknown]
  - Decreased appetite [Unknown]
  - Throat irritation [Unknown]
  - Oropharyngeal pain [Unknown]
